FAERS Safety Report 4414029-0 (Version None)
Quarter: 2004Q3

REPORT INFORMATION
  Report Type: 
  Country: None (occurrence: None)
  Receive Date: 20040728
  Receipt Date: 20040716
  Transmission Date: 20050211
  Serious: Yes (Hospitalization)
  Sender: FDA-Public Use
  Company Number: IBF20040004

PATIENT
  Age: 25 Year
  Sex: Male

DRUGS (2)
  1. IBUPROFEN [Suspect]
     Indication: HEADACHE
  2. IBUPROFEN [Suspect]
     Indication: MYALGIA

REACTIONS (2)
  - EOSINOPHILIC PNEUMONIA [None]
  - VIRAL UPPER RESPIRATORY TRACT INFECTION [None]
